FAERS Safety Report 25282354 (Version 1)
Quarter: 2025Q2

REPORT INFORMATION
  Report Type: Spontaneous
  Country: US (occurrence: US)
  Receive Date: 20250508
  Receipt Date: 20250508
  Transmission Date: 20250717
  Serious: Yes (Life-Threatening, Hospitalization)
  Sender: MYLAN
  Company Number: US-MYLANLABS-2025M1038481

PATIENT
  Age: 67 Year
  Sex: Male

DRUGS (88)
  1. NOREPINEPHRINE BITARTRATE [Suspect]
     Active Substance: NOREPINEPHRINE BITARTRATE
     Indication: Cytokine release syndrome
  2. NOREPINEPHRINE BITARTRATE [Suspect]
     Active Substance: NOREPINEPHRINE BITARTRATE
     Indication: Hypotension
  3. NOREPINEPHRINE BITARTRATE [Suspect]
     Active Substance: NOREPINEPHRINE BITARTRATE
     Route: 065
  4. NOREPINEPHRINE BITARTRATE [Suspect]
     Active Substance: NOREPINEPHRINE BITARTRATE
     Route: 065
  5. NOREPINEPHRINE BITARTRATE [Suspect]
     Active Substance: NOREPINEPHRINE BITARTRATE
  6. NOREPINEPHRINE BITARTRATE [Suspect]
     Active Substance: NOREPINEPHRINE BITARTRATE
  7. NOREPINEPHRINE BITARTRATE [Suspect]
     Active Substance: NOREPINEPHRINE BITARTRATE
     Route: 065
  8. NOREPINEPHRINE BITARTRATE [Suspect]
     Active Substance: NOREPINEPHRINE BITARTRATE
     Route: 065
  9. LEVETIRACETAM [Suspect]
     Active Substance: LEVETIRACETAM
     Indication: Encephalopathy
  10. LEVETIRACETAM [Suspect]
     Active Substance: LEVETIRACETAM
     Indication: Immune effector cell-associated neurotoxicity syndrome
     Route: 065
  11. LEVETIRACETAM [Suspect]
     Active Substance: LEVETIRACETAM
     Route: 065
  12. LEVETIRACETAM [Suspect]
     Active Substance: LEVETIRACETAM
  13. DEXAMETHASONE [Suspect]
     Active Substance: DEXAMETHASONE
     Indication: Cytokine release syndrome
  14. DEXAMETHASONE [Suspect]
     Active Substance: DEXAMETHASONE
  15. DEXAMETHASONE [Suspect]
     Active Substance: DEXAMETHASONE
     Route: 065
  16. DEXAMETHASONE [Suspect]
     Active Substance: DEXAMETHASONE
     Route: 065
  17. DEXAMETHASONE [Suspect]
     Active Substance: DEXAMETHASONE
     Dosage: 10 MILLIGRAM, Q6H
  18. DEXAMETHASONE [Suspect]
     Active Substance: DEXAMETHASONE
     Dosage: 10 MILLIGRAM, Q6H
  19. DEXAMETHASONE [Suspect]
     Active Substance: DEXAMETHASONE
     Dosage: 10 MILLIGRAM, Q6H
     Route: 065
  20. DEXAMETHASONE [Suspect]
     Active Substance: DEXAMETHASONE
     Dosage: 10 MILLIGRAM, Q6H
     Route: 065
  21. TOCILIZUMAB [Suspect]
     Active Substance: TOCILIZUMAB
     Indication: Cytokine release syndrome
  22. TOCILIZUMAB [Suspect]
     Active Substance: TOCILIZUMAB
     Route: 065
  23. TOCILIZUMAB [Suspect]
     Active Substance: TOCILIZUMAB
     Route: 065
  24. TOCILIZUMAB [Suspect]
     Active Substance: TOCILIZUMAB
  25. VASOPRESSIN [Suspect]
     Active Substance: VASOPRESSIN
     Indication: Cytokine release syndrome
  26. VASOPRESSIN [Suspect]
     Active Substance: VASOPRESSIN
     Route: 065
  27. VASOPRESSIN [Suspect]
     Active Substance: VASOPRESSIN
     Route: 065
  28. VASOPRESSIN [Suspect]
     Active Substance: VASOPRESSIN
  29. PHENYLEPHRINE [Suspect]
     Active Substance: PHENYLEPHRINE
     Indication: Cytokine release syndrome
  30. PHENYLEPHRINE [Suspect]
     Active Substance: PHENYLEPHRINE
     Route: 065
  31. PHENYLEPHRINE [Suspect]
     Active Substance: PHENYLEPHRINE
     Route: 065
  32. PHENYLEPHRINE [Suspect]
     Active Substance: PHENYLEPHRINE
  33. SILTUXIMAB [Suspect]
     Active Substance: SILTUXIMAB
     Indication: Cytokine release syndrome
  34. SILTUXIMAB [Suspect]
     Active Substance: SILTUXIMAB
     Route: 065
  35. SILTUXIMAB [Suspect]
     Active Substance: SILTUXIMAB
     Route: 065
  36. SILTUXIMAB [Suspect]
     Active Substance: SILTUXIMAB
  37. METHYLPREDNISOLONE [Suspect]
     Active Substance: METHYLPREDNISOLONE
     Indication: Cytokine release syndrome
     Dosage: 1 GRAM, BID
  38. METHYLPREDNISOLONE [Suspect]
     Active Substance: METHYLPREDNISOLONE
     Dosage: 1 GRAM, BID
     Route: 065
  39. METHYLPREDNISOLONE [Suspect]
     Active Substance: METHYLPREDNISOLONE
     Dosage: 1 GRAM, BID
     Route: 065
  40. METHYLPREDNISOLONE [Suspect]
     Active Substance: METHYLPREDNISOLONE
     Dosage: 1 GRAM, BID
  41. ANAKINRA [Suspect]
     Active Substance: ANAKINRA
     Indication: Cytokine release syndrome
     Dosage: 200 MILLIGRAM, Q6H
  42. ANAKINRA [Suspect]
     Active Substance: ANAKINRA
     Dosage: 200 MILLIGRAM, Q6H
     Route: 065
  43. ANAKINRA [Suspect]
     Active Substance: ANAKINRA
     Dosage: 200 MILLIGRAM, Q6H
     Route: 065
  44. ANAKINRA [Suspect]
     Active Substance: ANAKINRA
     Dosage: 200 MILLIGRAM, Q6H
  45. RUXOLITINIB [Suspect]
     Active Substance: RUXOLITINIB
     Indication: Cytokine release syndrome
     Dosage: 10 MILLIGRAM, BID
  46. RUXOLITINIB [Suspect]
     Active Substance: RUXOLITINIB
     Dosage: 10 MILLIGRAM, BID
     Route: 065
  47. RUXOLITINIB [Suspect]
     Active Substance: RUXOLITINIB
     Dosage: 10 MILLIGRAM, BID
     Route: 065
  48. RUXOLITINIB [Suspect]
     Active Substance: RUXOLITINIB
     Dosage: 10 MILLIGRAM, BID
  49. ANGIOTENSIN II [Suspect]
     Active Substance: ANGIOTENSIN II
     Indication: Cytokine release syndrome
  50. ANGIOTENSIN II [Suspect]
     Active Substance: ANGIOTENSIN II
     Route: 065
  51. ANGIOTENSIN II [Suspect]
     Active Substance: ANGIOTENSIN II
     Route: 065
  52. ANGIOTENSIN II [Suspect]
     Active Substance: ANGIOTENSIN II
  53. DEGARELIX [Concomitant]
     Active Substance: DEGARELIX
     Indication: Hormone-refractory prostate cancer
  54. DEGARELIX [Concomitant]
     Active Substance: DEGARELIX
     Indication: Prostate cancer metastatic
     Route: 065
  55. DEGARELIX [Concomitant]
     Active Substance: DEGARELIX
     Route: 065
  56. DEGARELIX [Concomitant]
     Active Substance: DEGARELIX
  57. LEUPROLIDE [Concomitant]
     Active Substance: LEUPROLIDE
     Indication: Hormone-refractory prostate cancer
  58. LEUPROLIDE [Concomitant]
     Active Substance: LEUPROLIDE
     Indication: Prostate cancer metastatic
     Route: 065
  59. LEUPROLIDE [Concomitant]
     Active Substance: LEUPROLIDE
     Route: 065
  60. LEUPROLIDE [Concomitant]
     Active Substance: LEUPROLIDE
  61. APALUTAMIDE [Concomitant]
     Active Substance: APALUTAMIDE
     Indication: Hormone-refractory prostate cancer
  62. APALUTAMIDE [Concomitant]
     Active Substance: APALUTAMIDE
     Indication: Prostate cancer metastatic
     Route: 065
  63. APALUTAMIDE [Concomitant]
     Active Substance: APALUTAMIDE
     Route: 065
  64. APALUTAMIDE [Concomitant]
     Active Substance: APALUTAMIDE
  65. OLAPARIB [Concomitant]
     Active Substance: OLAPARIB
     Indication: Hormone-refractory prostate cancer
  66. OLAPARIB [Concomitant]
     Active Substance: OLAPARIB
     Indication: Prostate cancer metastatic
     Route: 065
  67. OLAPARIB [Concomitant]
     Active Substance: OLAPARIB
     Route: 065
  68. OLAPARIB [Concomitant]
     Active Substance: OLAPARIB
  69. DOCETAXEL [Concomitant]
     Active Substance: DOCETAXEL
     Indication: Hormone-refractory prostate cancer
  70. DOCETAXEL [Concomitant]
     Active Substance: DOCETAXEL
     Indication: Prostate cancer metastatic
     Route: 065
  71. DOCETAXEL [Concomitant]
     Active Substance: DOCETAXEL
     Route: 065
  72. DOCETAXEL [Concomitant]
     Active Substance: DOCETAXEL
  73. FLUDARABINE [Concomitant]
     Active Substance: FLUDARABINE PHOSPHATE
     Indication: Hormone-refractory prostate cancer
  74. FLUDARABINE [Concomitant]
     Active Substance: FLUDARABINE PHOSPHATE
     Indication: Prostate cancer metastatic
     Route: 065
  75. FLUDARABINE [Concomitant]
     Active Substance: FLUDARABINE PHOSPHATE
     Route: 065
  76. FLUDARABINE [Concomitant]
     Active Substance: FLUDARABINE PHOSPHATE
  77. CYCLOPHOSPHAMIDE [Concomitant]
     Active Substance: CYCLOPHOSPHAMIDE
     Indication: Hormone-refractory prostate cancer
  78. CYCLOPHOSPHAMIDE [Concomitant]
     Active Substance: CYCLOPHOSPHAMIDE
     Indication: Prostate cancer metastatic
     Route: 065
  79. CYCLOPHOSPHAMIDE [Concomitant]
     Active Substance: CYCLOPHOSPHAMIDE
     Route: 065
  80. CYCLOPHOSPHAMIDE [Concomitant]
     Active Substance: CYCLOPHOSPHAMIDE
  81. GAMIFANT [Concomitant]
     Active Substance: EMAPALUMAB-LZSG
     Indication: Cytokine release syndrome
  82. GAMIFANT [Concomitant]
     Active Substance: EMAPALUMAB-LZSG
     Route: 065
  83. GAMIFANT [Concomitant]
     Active Substance: EMAPALUMAB-LZSG
     Route: 065
  84. GAMIFANT [Concomitant]
     Active Substance: EMAPALUMAB-LZSG
  85. RIMIDUCID [Concomitant]
     Active Substance: RIMIDUCID
     Indication: Hormone-refractory prostate cancer
     Dosage: UNK, QW
  86. RIMIDUCID [Concomitant]
     Active Substance: RIMIDUCID
     Indication: Prostate cancer metastatic
     Dosage: UNK, QW
     Route: 065
  87. RIMIDUCID [Concomitant]
     Active Substance: RIMIDUCID
     Dosage: UNK, QW
     Route: 065
  88. RIMIDUCID [Concomitant]
     Active Substance: RIMIDUCID
     Dosage: UNK, QW

REACTIONS (1)
  - Drug ineffective [Unknown]
